FAERS Safety Report 10945071 (Version 1)
Quarter: 2015Q1

REPORT INFORMATION
  Report Type: Spontaneous
  Country: US (occurrence: None)
  Receive Date: 20150319
  Receipt Date: 20150319
  Transmission Date: 20150721
  Serious: Yes (Life-Threatening)
  Sender: FDA-Public Use
  Company Number: COR_00259_2015

PATIENT

DRUGS (7)
  1. PACLITAXEL. [Suspect]
     Active Substance: PACLITAXEL
     Indication: NON-SMALL CELL LUNG CANCER STAGE III
     Dosage: ESCALATING DOSE ON DAY 2 OF CYCLOE
     Route: 042
  2. BORTEZOMIB [Suspect]
     Active Substance: BORTEZOMIB
     Indication: NON-SMALL CELL LUNG CANCER STAGE III
     Dosage: ESCALATING DOSE ON DAYS 1,4,8 AND 11 OF CYCLES; 1.2 MG/M2;  ON DAYS 1,4,8 AND 11 OF CYCLE
     Route: 042
  3. DEXAMETHASONE. [Concomitant]
     Active Substance: DEXAMETHASONE
  4. BACTRIM [Concomitant]
     Active Substance: SULFAMETHOXAZOLE\TRIMETHOPRIM
  5. CARBOPLATIN. [Suspect]
     Active Substance: CARBOPLATIN
     Indication: NON-SMALL CELL LUNG CANCER STAGE III
     Dosage: ESCALATING DOSXE ON DAY 2 OF CYCLE; AUC OF 6 FOR 2 CYCLES
     Route: 042
  6. RADIATION [Suspect]
     Active Substance: RADIATION THERAPY
     Indication: NON-SMALL CELL LUNG CANCER STAGE III
     Dosage: 60 GY/30 DAILY FRACTION
  7. DIPHENHYDRAMINE HCL [Concomitant]
     Active Substance: DIPHENHYDRAMINE HYDROCHLORIDE

REACTIONS (2)
  - Toxicity to various agents [None]
  - Depressed level of consciousness [None]
